FAERS Safety Report 5877182-8 (Version None)
Quarter: 2008Q3

REPORT INFORMATION
  Report Type: 
  Country: None (occurrence: None)
  Receive Date: 20080908
  Receipt Date: 20080908
  Transmission Date: 20090109
  Serious: Yes (Death)
  Sender: FDA-Public Use
  Company Number: None

PATIENT
  Age: 52 Year
  Sex: Female
  Weight: 102.5129 kg

DRUGS (1)
  1. NUVARING [Suspect]
     Indication: DYSFUNCTIONAL UTERINE BLEEDING
     Dosage: 1 RING  EVERY 4 WEEKS VAG
     Route: 067
     Dates: start: 20070601, end: 20080718

REACTIONS (1)
  - PULMONARY EMBOLISM [None]
